FAERS Safety Report 9493560 (Version 1)
Quarter: 2013Q3

REPORT INFORMATION
  Report Type: Spontaneous
  Country: US (occurrence: US)
  Receive Date: 20130902
  Receipt Date: 20130902
  Transmission Date: 20140515
  Serious: Yes (Death)
  Sender: FDA-Public Use
  Company Number: US-PFIZER INC-2013249333

PATIENT
  Age: 44 Year
  Sex: Female

DRUGS (1)
  1. AROMASIN [Suspect]
     Indication: BREAST DISORDER
     Dosage: 25 MG, UNK
     Dates: start: 20130305

REACTIONS (2)
  - Disease progression [Fatal]
  - Breast disorder [Fatal]
